FAERS Safety Report 5674112-9 (Version None)
Quarter: 2008Q1

REPORT INFORMATION
  Report Type: 
  Country: None (occurrence: None)
  Receive Date: 20080320
  Receipt Date: 20080313
  Transmission Date: 20080703
  Serious: Yes (Death)
  Sender: FDA-Public Use
  Company Number: CA-BAYER-200716827GDS

PATIENT
  Age: 66 Year
  Sex: Male

DRUGS (10)
  1. NEXAVAR [Suspect]
     Indication: HEPATIC NEOPLASM MALIGNANT
     Dosage: TOTAL DAILY DOSE: 400 MG  UNIT DOSE: 200 MG
     Route: 048
     Dates: start: 20071015, end: 20071025
  2. NEXAVAR [Suspect]
     Dosage: TOTAL DAILY DOSE: 400 MG  UNIT DOSE: 200 MG
     Route: 048
     Dates: start: 20070101, end: 20070101
  3. TENORMIN [Concomitant]
     Dosage: AS USED: 50 MG
  4. ADALAT [Concomitant]
     Route: 048
  5. MONOPRIL [Concomitant]
     Route: 048
  6. ATARAX [Concomitant]
     Route: 048
  7. ATARAX [Concomitant]
     Dosage: TOTAL DAILY DOSE: 75 MG
  8. STATIN [Concomitant]
     Dosage: TOTAL DAILY DOSE: 30 G
  9. M-ESLON [Concomitant]
     Dosage: TOTAL DAILY DOSE: 20 MG
  10. PANTOPRAZOLE SODIUM [Concomitant]

REACTIONS (1)
  - HEPATORENAL SYNDROME [None]
